FAERS Safety Report 8375492-6 (Version None)
Quarter: 2012Q2

REPORT INFORMATION
  Report Type: 
  Country: None (occurrence: None)
  Receive Date: 20120518
  Receipt Date: 20120518
  Transmission Date: 20120825
  Serious: No
  Sender: FDA-Public Use
  Company Number: None

PATIENT
  Age: 59 Year
  Sex: Male
  Weight: 111.1313 kg

DRUGS (1)
  1. LEXISCAN [Suspect]
     Indication: CHEST PAIN
     Dosage: 0.4 MG 5 ML IV INFUSED
     Route: 042
     Dates: start: 20120322

REACTIONS (2)
  - ATRIOVENTRICULAR BLOCK COMPLETE [None]
  - UNRESPONSIVE TO STIMULI [None]
